FAERS Safety Report 4311397-5 (Version None)
Quarter: 2004Q1

REPORT INFORMATION
  Report Type: 
  Country: None (occurrence: None)
  Receive Date: 20040303
  Receipt Date: 20040303
  Transmission Date: 20041129
  Serious: Yes (Hospitalization)
  Sender: FDA-Public Use
  Company Number: None

PATIENT
  Age: 50 Year
  Sex: Female
  Weight: 63.5036 kg

DRUGS (2)
  1. TOPIRAMATE 100 MG AM 200 MG HS [Suspect]
     Indication: POST-TRAUMATIC STRESS DISORDER
     Dosage: PO
     Route: 048
  2. MODAFINIL [Suspect]

REACTIONS (6)
  - BLOOD CHLORIDE INCREASED [None]
  - BLOOD POTASSIUM DECREASED [None]
  - BLOOD SODIUM DECREASED [None]
  - ELECTROLYTE DEPLETION [None]
  - FATIGUE [None]
  - HYPOTENSION [None]
